FAERS Safety Report 4756833-5 (Version None)
Quarter: 2005Q3

REPORT INFORMATION
  Report Type: 
  Country: None (occurrence: None)
  Receive Date: 20050830
  Receipt Date: 20050725
  Transmission Date: 20060218
  Serious: Yes (Hospitalization, Congenital Anomaly)
  Sender: FDA-Public Use
  Company Number: GB-JNJFOC-20050503081

PATIENT
  Sex: Male

DRUGS (2)
  1. TOPIRAMATE [Suspect]
     Indication: EPILEPSY
     Dates: start: 20020101
  2. VALPROATE SODIUM [Suspect]
     Indication: EPILEPSY
     Route: 064
     Dates: end: 20040901

REACTIONS (3)
  - APGAR SCORE LOW [None]
  - CRANIOSYNOSTOSIS [None]
  - DRUG EXPOSURE DURING PREGNANCY [None]
